FAERS Safety Report 10534590 (Version 1)
Quarter: 2014Q4

REPORT INFORMATION
  Report Type: Spontaneous
  Country: IT (occurrence: FR)
  Receive Date: 20141022
  Receipt Date: 20141022
  Transmission Date: 20150529
  Serious: Yes (Hospitalization)
  Sender: FDA-Public Use
  Company Number: FR-FRI-1000071695

PATIENT
  Age: 65 Year
  Sex: Male

DRUGS (4)
  1. EDEX [Suspect]
     Active Substance: ALPROSTADIL
     Indication: ERECTILE DYSFUNCTION
     Route: 017
     Dates: start: 20140824, end: 20140824
  2. ANDROCUR [Suspect]
     Active Substance: CYPROTERONE ACETATE
     Indication: PROSTATE CANCER
     Route: 048
     Dates: start: 2009
  3. FLECAINE [Suspect]
     Active Substance: FLECAINIDE
     Indication: EXTRASYSTOLES
     Dosage: 100 MG
     Route: 048
  4. NEBIVOLOL [Suspect]
     Active Substance: NEBIVOLOL
     Indication: EXTRASYSTOLES
     Dosage: 2.5 MG
     Route: 048
     Dates: end: 20140828

REACTIONS (2)
  - Cerebral haematoma [Recovered/Resolved with Sequelae]
  - Aphasia [Recovered/Resolved with Sequelae]

NARRATIVE: CASE EVENT DATE: 20140825
